FAERS Safety Report 9027092 (Version 1)
Quarter: 2013Q1

REPORT INFORMATION
  Report Type: Spontaneous
  Country: IT (occurrence: IT)
  Receive Date: 20130123
  Receipt Date: 20130123
  Transmission Date: 20140127
  Serious: Yes (Other)
  Sender: FDA-Public Use
  Company Number: IT-PFIZER INC-2013028984

PATIENT
  Age: 89 Year
  Sex: Female

DRUGS (6)
  1. GABAPENTIN [Suspect]
     Dosage: 900 MG, DAILY
     Route: 048
     Dates: start: 20120101, end: 20121215
  2. OXYCONTIN [Suspect]
     Dosage: 40 MG, DAILY
     Route: 048
     Dates: start: 20120101, end: 20121215
  3. LEXOTAN [Concomitant]
     Dosage: UNK
  4. KARVEZIDE [Concomitant]
     Dosage: UNK
  5. HALCION [Concomitant]
     Dosage: UNK
  6. PANTOPRAZOLE SODIUM [Concomitant]
     Dosage: UNK

REACTIONS (3)
  - Faecaloma [Unknown]
  - Abdominal pain [Unknown]
  - Flatulence [Unknown]
